FAERS Safety Report 19844372 (Version 1)
Quarter: 2021Q3

REPORT INFORMATION
  Report Type: Other
  Country: FR (occurrence: FR)
  Receive Date: 20210917
  Receipt Date: 20210917
  Transmission Date: 20211014
  Serious: Yes (Hospitalization, Other)
  Sender: FDA-Public Use
  Company Number: FR-GUARDIAN DRUG COMPANY-2118488

PATIENT
  Age: 59 Year
  Sex: Male

DRUGS (2)
  1. CHILDRENS IBUPROFEN [Suspect]
     Active Substance: IBUPROFEN
     Indication: PRODUCT USED FOR UNKNOWN INDICATION
     Route: 065
  2. AMOXICILLIN. [Suspect]
     Active Substance: AMOXICILLIN
     Route: 065

REACTIONS (1)
  - Toxic epidermal necrolysis [Recovered/Resolved with Sequelae]
